FAERS Safety Report 10602871 (Version 3)
Quarter: 2015Q2

REPORT INFORMATION
  Report Type: Spontaneous
  Country: DE (occurrence: DE)
  Receive Date: 20141124
  Receipt Date: 20150626
  Transmission Date: 20150821
  Serious: Yes (Death, Life-Threatening, Hospitalization, Other)
  Sender: FDA-Public Use
  Company Number: US-ASTRAZENECA-2014SE87867

PATIENT
  Age: 1 Month
  Sex: Male

DRUGS (6)
  1. VIGANTOLETTEN [Concomitant]
     Active Substance: CHOLECALCIFEROL
     Indication: PRODUCT USED FOR UNKNOWN INDICATION
     Route: 048
  2. ASPIRIN. [Concomitant]
     Active Substance: ASPIRIN
     Indication: PRODUCT USED FOR UNKNOWN INDICATION
     Route: 048
  3. SYNAGIS [Suspect]
     Active Substance: PALIVIZUMAB
     Indication: ANTIVIRAL PROPHYLAXIS
     Route: 030
     Dates: start: 20141006, end: 20141006
  4. ROTATEQ [Suspect]
     Active Substance: HUMAN ROTAVIRUS A TYPE G1P7(5) STRAIN WI79 LIVE ANTIGEN\HUMAN ROTAVIRUS A TYPE G2P7(5) STRAIN SC2 LIVE ANTIGEN\HUMAN ROTAVIRUS A TYPE G3P7(5) STRAIN WI78 LIVE ANTIGEN\HUMAN ROTAVIRUS A TYPE G4P7(5) STRAIN BRB LIVE ANTIGEN\HUMAN ROTAVIRUS A TYPE G6P1A(8) STRAIN WI79 LIVE ANTIGEN
     Indication: PROPHYLAXIS
     Route: 048
     Dates: start: 20141106, end: 20141106
  5. SYNAGIS [Suspect]
     Active Substance: PALIVIZUMAB
     Indication: ANTIVIRAL PROPHYLAXIS
     Route: 030
     Dates: start: 20141106, end: 20141106
  6. LENOXIN [Concomitant]
     Indication: PRODUCT USED FOR UNKNOWN INDICATION
     Route: 048

REACTIONS (31)
  - Death [Fatal]
  - Condition aggravated [Unknown]
  - Cardiac arrest [Unknown]
  - Apathy [Unknown]
  - Cyanosis [Unknown]
  - Blood lactic acid increased [Unknown]
  - Shunt malfunction [Unknown]
  - Cardiac failure acute [Unknown]
  - Apnoea [Unknown]
  - Restlessness [Unknown]
  - Aspiration [Unknown]
  - Agitation [Unknown]
  - Abdominal pain [Unknown]
  - Coronary no-reflow phenomenon [Unknown]
  - Restlessness [Unknown]
  - Fatigue [Unknown]
  - Cold sweat [Unknown]
  - Tachycardia [Unknown]
  - Dyspnoea [Unknown]
  - Vomiting [Unknown]
  - Myocardial ischaemia [Unknown]
  - Hypoxia [Unknown]
  - Oxygen saturation decreased [Unknown]
  - Bradycardia [Unknown]
  - Tachypnoea [Unknown]
  - Asthenia [Unknown]
  - Intestinal angina [Unknown]
  - Shunt occlusion [Unknown]
  - Thrombocytopenia [Unknown]
  - Cardiac failure [Unknown]
  - Immunisation reaction [Unknown]

NARRATIVE: CASE EVENT DATE: 201410
